FAERS Safety Report 4618340-X (Version None)
Quarter: 2005Q1

REPORT INFORMATION
  Report Type: 
  Country: None (occurrence: None)
  Receive Date: 20050323
  Receipt Date: 20050316
  Transmission Date: 20050727
  Serious: Yes (Hospitalization)
  Sender: FDA-Public Use
  Company Number: 2005SE00317

PATIENT
  Age: 67 Year
  Sex: Male

DRUGS (4)
  1. BLOPRESS [Suspect]
     Indication: HYPERTENSION
     Dosage: 1 DF QD PO
     Route: 048
     Dates: start: 20020817, end: 20050112
  2. SELBEX [Suspect]
     Dates: end: 20050112
  3. LAC B [Concomitant]
  4. DELUX-CM [Concomitant]

REACTIONS (8)
  - ALANINE AMINOTRANSFERASE INCREASED [None]
  - ASPARTATE AMINOTRANSFERASE INCREASED [None]
  - BLOOD ALKALINE PHOSPHATASE INCREASED [None]
  - CHOLESTASIS [None]
  - ENTEROCOLITIS [None]
  - GAMMA-GLUTAMYLTRANSFERASE INCREASED [None]
  - GASTROINTESTINAL TRACT ADENOMA [None]
  - LIVER DISORDER [None]
